FAERS Safety Report 9777559 (Version 2)
Quarter: 2014Q1

REPORT INFORMATION
  Report Type: Spontaneous
  Country: US (occurrence: US)
  Receive Date: 20131222
  Receipt Date: 20140131
  Transmission Date: 20141002
  Serious: No
  Sender: FDA-Public Use
  Company Number: US-009507513-1312USA008380

PATIENT
  Age: 57 Year
  Sex: Female
  Weight: 76.19 kg

DRUGS (2)
  1. CLARITIN LIQUIGELS [Suspect]
     Indication: PRODUCT USED FOR UNKNOWN INDICATION
     Dosage: 10 MG, QD
     Route: 048
     Dates: end: 20131209
  2. HYDROCHLOROTHIAZIDE (+) LISINOPRIL [Concomitant]
     Indication: HYPERTENSION
     Dosage: UNK, UNKNOWN
     Route: 048

REACTIONS (2)
  - Abdominal pain upper [Recovered/Resolved]
  - Drug effect increased [Recovered/Resolved]
